FAERS Safety Report 6234715-X (Version None)
Quarter: 2009Q2

REPORT INFORMATION
  Report Type: 
  Country: None (occurrence: None)
  Receive Date: 20090615
  Receipt Date: 20090326
  Transmission Date: 20091009
  Serious: No
  Sender: FDA-Public Use
  Company Number: DSA_33430_2009

PATIENT
  Sex: Male

DRUGS (11)
  1. XENAZINE [Suspect]
     Indication: HUNTINGTON'S CHOREA
     Dosage: (12.5 MG, 1/2 OF 25 MG TABLET IN THE EVENING), (12.5 MG BID), (12.5 MG BID)
     Dates: start: 20081118, end: 20081201
  2. XENAZINE [Suspect]
     Indication: HUNTINGTON'S CHOREA
     Dosage: (12.5 MG, 1/2 OF 25 MG TABLET IN THE EVENING), (12.5 MG BID), (12.5 MG BID)
     Dates: start: 20090121, end: 20090201
  3. XENAZINE [Suspect]
     Indication: HUNTINGTON'S CHOREA
     Dosage: (12.5 MG, 1/2 OF 25 MG TABLET IN THE EVENING), (12.5 MG BID), (12.5 MG BID)
     Dates: start: 20081202
  4. EXELON /01383201/ [Concomitant]
  5. RISPERDAL [Concomitant]
  6. WELLBUTRIN [Concomitant]
  7. MINOCYCLINE HCL [Concomitant]
  8. BLACKMORES CO-Q10 [Concomitant]
  9. LOVAZA [Concomitant]
  10. LIPITOR [Concomitant]
  11. HYDROCHLOROTHIZIDE [Concomitant]

REACTIONS (3)
  - PRODUCT QUALITY ISSUE [None]
  - SEDATION [None]
  - SOMNOLENCE [None]
